FAERS Safety Report 10872602 (Version 10)
Quarter: 2015Q4

REPORT INFORMATION
  Report Type: Report from Study
  Country: DE (occurrence: DE)
  Receive Date: 20150227
  Receipt Date: 20151229
  Transmission Date: 20160304
  Serious: Yes (Death, Hospitalization, Other)
  Sender: FDA-Public Use
  Company Number: DE-ROCHE-1528272

PATIENT
  Age: 68 Year
  Sex: Female
  Weight: 50 kg

DRUGS (22)
  1. RITUXIMAB [Suspect]
     Active Substance: RITUXIMAB
     Indication: CHRONIC LYMPHOCYTIC LEUKAEMIA REFRACTORY
     Dosage: THE LAST DOSE PRIOR TO THE SUBARACHNOIDAL HAEMORRHAGE WAS ADMINISTERED ON 05/MAR/2015
     Route: 065
     Dates: start: 20150305, end: 20150306
  2. FENISTIL (GERMANY) [Concomitant]
     Route: 042
     Dates: start: 20150127, end: 20150127
  3. RANITIDINE (INTRAVENOUS) [Concomitant]
     Route: 042
     Dates: start: 20150127, end: 20150127
  4. GLIMEPIRIDE. [Concomitant]
     Active Substance: GLIMEPIRIDE
     Route: 048
     Dates: start: 20150412, end: 20150413
  5. MOXIFLOXACIN. [Concomitant]
     Active Substance: MOXIFLOXACIN
     Route: 048
     Dates: start: 20150411
  6. PARACETAMOL [Concomitant]
     Active Substance: ACETAMINOPHEN
     Route: 048
     Dates: start: 20150127, end: 20150127
  7. GLIMEPIRIDE. [Concomitant]
     Active Substance: GLIMEPIRIDE
     Route: 048
     Dates: start: 200811, end: 20150404
  8. COTRIM D.S. [Concomitant]
     Active Substance: SULFAMETHOXAZOLE\TRIMETHOPRIM
     Route: 048
     Dates: start: 20080127, end: 20150413
  9. IBRUTINIB [Suspect]
     Active Substance: IBRUTINIB
     Indication: CHRONIC LYMPHOCYTIC LEUKAEMIA REFRACTORY
     Dosage: THE LAST DOSE PRIOR TO THE SUBARACHNOIDAL HAEMORRHAGE WAS ADMINISTERED ON 07/APR/2015
     Route: 065
     Dates: start: 20150331, end: 20150408
  10. SODIUM CHLORIDE. [Concomitant]
     Active Substance: SODIUM CHLORIDE
     Route: 042
     Dates: start: 20150127, end: 20150127
  11. IMIPENEM [Concomitant]
     Active Substance: IMIPENEM
     Route: 042
     Dates: start: 20150407, end: 20150410
  12. BENDAMUSTINE [Suspect]
     Active Substance: BENDAMUSTINE
     Indication: CHRONIC LYMPHOCYTIC LEUKAEMIA REFRACTORY
     Dosage: THE LAST DOSE PRIOR TO THE SUBARACHNOIDAL HAEMORRHAGE WAS ADMINISTERED ON 06/MAR/2015
     Route: 042
     Dates: start: 20150305, end: 20150306
  13. TOREM [Concomitant]
     Active Substance: TORSEMIDE
     Route: 048
     Dates: start: 20150213, end: 20150424
  14. GRANISETRON [Concomitant]
     Active Substance: GRANISETRON
     Route: 048
     Dates: start: 20150212, end: 20150424
  15. PLATELETS [Concomitant]
     Active Substance: HUMAN PLATELET, ALLOGENIC
     Route: 042
     Dates: start: 20150127, end: 20150127
  16. AMPHO-MORONAL [Concomitant]
     Active Substance: AMPHOTERICIN B
     Route: 048
     Dates: start: 20150325, end: 20150412
  17. ALLOPURINOL. [Concomitant]
     Active Substance: ALLOPURINOL
     Route: 048
     Dates: start: 200804, end: 20150212
  18. AVALOX [Concomitant]
     Active Substance: MOXIFLOXACIN HYDROCHLORIDE
     Route: 048
     Dates: start: 20150203, end: 20150303
  19. PREDNISOLONE. [Concomitant]
     Active Substance: PREDNISOLONE
     Route: 042
     Dates: start: 20150127, end: 20150127
  20. PANTOZOL [Concomitant]
     Active Substance: PANTOPRAZOLE SODIUM
     Route: 048
     Dates: start: 20150127, end: 20150424
  21. L-THYROXIN [Concomitant]
     Active Substance: LEVOTHYROXINE SODIUM
     Route: 048
     Dates: start: 200801, end: 20150503
  22. OBINUTUZUMAB [Suspect]
     Active Substance: OBINUTUZUMAB
     Indication: CHRONIC LYMPHOCYTIC LEUKAEMIA REFRACTORY
     Dosage: FREQUENCY AS PER PROTOCOL?DATE OF LAST DOSE PRIOR TO SAE: 27/JAN/2015
     Route: 042
     Dates: start: 20150126, end: 20150303

REACTIONS (5)
  - Subarachnoid haemorrhage [Not Recovered/Not Resolved]
  - Tumour lysis syndrome [Recovered/Resolved]
  - Infection [Recovered/Resolved]
  - Pancytopenia [Fatal]
  - Neutropenia [Recovered/Resolved]

NARRATIVE: CASE EVENT DATE: 20150127
